FAERS Safety Report 11724204 (Version 4)
Quarter: 2018Q4

REPORT INFORMATION
  Report Type: Spontaneous
  Country: US (occurrence: US)
  Receive Date: 20151111
  Receipt Date: 20181113
  Transmission Date: 20190204
  Serious: Yes (Hospitalization, Other)
  Sender: FDA-Public Use
  Company Number: US-DSJP-DSU-2015-132117

PATIENT

DRUGS (3)
  1. BENICAR [Suspect]
     Active Substance: OLMESARTAN MEDOXOMIL
     Indication: HYPERTENSION
     Dosage: 20 MG, QD
     Dates: start: 201005, end: 2015
  2. BENICAR HCT [Suspect]
     Active Substance: HYDROCHLOROTHIAZIDE\OLMESARTAN MEDOXOMIL
     Indication: HYPERTENSION
     Dosage: 20/?? MG, QD
     Dates: start: 20100402
  3. BENICAR HCT [Suspect]
     Active Substance: HYDROCHLOROTHIAZIDE\OLMESARTAN MEDOXOMIL
     Dosage: UNK

REACTIONS (16)
  - Irritable bowel syndrome [Unknown]
  - Diverticulum intestinal [Unknown]
  - Fructose intolerance [Unknown]
  - Depression [Unknown]
  - Gluten sensitivity [Unknown]
  - Nephrolithiasis [Unknown]
  - Lactose intolerance [Unknown]
  - Anal fissure [Unknown]
  - Pancreatic failure [Unknown]
  - Emotional distress [Unknown]
  - Sprue-like enteropathy [Recovering/Resolving]
  - Pancreatic mass [Unknown]
  - Gastrooesophageal reflux disease [Recovering/Resolving]
  - Haemorrhoids [Unknown]
  - Intestinal obstruction [Recovered/Resolved]
  - Hydronephrosis [Unknown]

NARRATIVE: CASE EVENT DATE: 2010
